FAERS Safety Report 7930309-6 (Version None)
Quarter: 2011Q4

REPORT INFORMATION
  Report Type: 
  Country: None (occurrence: None)
  Receive Date: 20111121
  Receipt Date: 20111110
  Transmission Date: 20120403
  Serious: Yes (Hospitalization, Other)
  Sender: FDA-Public Use
  Company Number: BR-SANOFI-AVENTIS-2011SA043735

PATIENT
  Age: 75 Year
  Sex: Male
  Weight: 84 kg

DRUGS (38)
  1. CARVEDILOL [Concomitant]
  2. SPIRONOLACTONE [Concomitant]
  3. ALLOPURINOL [Concomitant]
  4. FUROSEMIDE [Concomitant]
  5. ENOXAPARIN SODIUM [Concomitant]
  6. DIPYRONE TAB [Concomitant]
  7. DIGOXIN [Concomitant]
  8. ALL OTHER THERAPEUTIC PRODUCTS [Concomitant]
  9. BRICANYL [Concomitant]
  10. DUODERM HYDROACTIVE GEL [Concomitant]
  11. MAGNESIUM SULFATE [Concomitant]
  12. METOCLOPRAMIDE HYDROCHLORIDE [Concomitant]
  13. DIURETICS [Concomitant]
  14. LOSARTAN [Concomitant]
  15. IMIPENEM [Concomitant]
  16. HYDROCORTISONE [Concomitant]
  17. PAPAIN [Concomitant]
  18. LASIX [Concomitant]
  19. ADRENALIN IN OIL INJ [Concomitant]
  20. ACETAMINOPHEN W/ CODEINE [Concomitant]
  21. ALL OTHER THERAPEUTIC PRODUCTS [Concomitant]
  22. WARFARIN SODIUM [Concomitant]
  23. METFORMIN HCL [Concomitant]
  24. LEVOTHYROXINE SODIUM [Concomitant]
  25. PIPERACILLIN AND TAZOBACTAM [Concomitant]
     Dates: start: 20110424
  26. PRECEDEX [Concomitant]
  27. POTASSIUM CHLORIDE [Concomitant]
  28. PHENERGAN [Concomitant]
  29. DRONEDARONE HCL [Suspect]
     Indication: ATRIAL FIBRILLATION
     Route: 048
     Dates: start: 20110511
  30. TYROSINE [Concomitant]
  31. INSULIN [Concomitant]
  32. TRAMADOL HYDROCHLORIDE [Concomitant]
  33. ASPIRIN [Concomitant]
  34. OMEPRAZOLE [Concomitant]
  35. ATROVENT [Concomitant]
  36. DOBUTAMINE HCL [Concomitant]
  37. DIAZEPAM [Concomitant]
  38. HYDROCORTISONE [Concomitant]

REACTIONS (7)
  - HEAD INJURY [None]
  - DYSPHAGIA [None]
  - ISCHAEMIC STROKE [None]
  - PNEUMONIA ASPIRATION [None]
  - CARDIAC FAILURE [None]
  - HAEMATURIA [None]
  - PNEUMONIA [None]
